FAERS Safety Report 8008368-4 (Version None)
Quarter: 2011Q4

REPORT INFORMATION
  Report Type: 
  Country: None (occurrence: None)
  Receive Date: 20111227
  Receipt Date: 20111220
  Transmission Date: 20120403
  Serious: Yes (Other)
  Sender: FDA-Public Use
  Company Number: US-ROCHE-797286

PATIENT
  Sex: Male
  Weight: 94.432 kg

DRUGS (1)
  1. ACCUTANE [Suspect]
     Indication: ACNE
     Route: 048
     Dates: start: 19921102, end: 19930331

REACTIONS (3)
  - COLITIS ULCERATIVE [None]
  - INJURY [None]
  - DEPRESSION [None]
